FAERS Safety Report 5489866-4 (Version None)
Quarter: 2007Q4

REPORT INFORMATION
  Report Type: 
  Country: None (occurrence: None)
  Receive Date: 20071017
  Receipt Date: 20071017
  Transmission Date: 20080405
  Serious: No
  Sender: FDA-Public Use
  Company Number: None

PATIENT
  Age: 54 Year
  Sex: Male

DRUGS (5)
  1. AUGMENTIN '125' [Suspect]
     Dates: start: 20060919, end: 20060928
  2. PRILOSEC [Concomitant]
  3. DITROPAN [Concomitant]
  4. CARDURA [Concomitant]
  5. ALLEGRA [Concomitant]

REACTIONS (8)
  - DECREASED APPETITE [None]
  - FAECES DISCOLOURED [None]
  - JAUNDICE [None]
  - LIVER FUNCTION TEST ABNORMAL [None]
  - LIVER INJURY [None]
  - NAUSEA [None]
  - PRURITUS [None]
  - RASH [None]
